FAERS Safety Report 13289210 (Version 4)
Quarter: 2017Q3

REPORT INFORMATION
  Report Type: Report from Study
  Country: JP (occurrence: JP)
  Receive Date: 20170302
  Receipt Date: 20170704
  Transmission Date: 20171127
  Serious: Yes (Other)
  Sender: FDA-Public Use
  Company Number: JP-AMGEN-JPNNI2017024745

PATIENT
  Age: 48 Year
  Sex: Male

DRUGS (38)
  1. CARFILZOMIB [Suspect]
     Active Substance: CARFILZOMIB
     Indication: PLASMA CELL MYELOMA
     Dosage: 16 MG/M2, UNK
     Route: 041
     Dates: start: 20161108, end: 20161109
  2. CARFILZOMIB [Suspect]
     Active Substance: CARFILZOMIB
     Dosage: 22 MG/M2, UNK
     Route: 041
     Dates: start: 20161115, end: 20161116
  3. CARFILZOMIB [Suspect]
     Active Substance: CARFILZOMIB
     Dosage: 22 MG/M2, UNK
     Route: 041
     Dates: start: 20161121, end: 20161122
  4. CARFILZOMIB [Suspect]
     Active Substance: CARFILZOMIB
     Dosage: 22 MG/M2, UNK
     Route: 041
     Dates: start: 20170125, end: 20170126
  5. CARFILZOMIB [Suspect]
     Active Substance: CARFILZOMIB
     Dosage: 27 MG/M2, UNK
     Route: 041
     Dates: start: 20170419, end: 20170420
  6. LENALIDOMIDE [Suspect]
     Active Substance: LENALIDOMIDE
     Dosage: 15 MG, UNK
     Route: 048
     Dates: start: 20170215, end: 20170307
  7. DEXAMETHASONE. [Concomitant]
     Active Substance: DEXAMETHASONE
     Dosage: 20 MG, UNK
     Dates: start: 20161226, end: 20161226
  8. CARFILZOMIB [Suspect]
     Active Substance: CARFILZOMIB
     Dosage: 27 MG/M2, UNK
     Route: 041
     Dates: start: 20170412, end: 20170413
  9. DEXAMETHASONE. [Concomitant]
     Active Substance: DEXAMETHASONE
     Dosage: 20 MG, UNK
     Dates: start: 20170308, end: 20170308
  10. LENALIDOMIDE [Suspect]
     Active Substance: LENALIDOMIDE
     Indication: PLASMA CELL MYELOMA
     Dosage: 15 MG, UNK
     Route: 048
     Dates: start: 20161108, end: 20161128
  11. LENALIDOMIDE [Suspect]
     Active Substance: LENALIDOMIDE
     Dosage: 15 MG, UNK
     Route: 048
     Dates: start: 20170405, end: 20170425
  12. DEXAMETHASONE. [Concomitant]
     Active Substance: DEXAMETHASONE
     Dosage: 20 MG, UNK
     Dates: start: 20170208, end: 20170208
  13. DEXAMETHASONE. [Concomitant]
     Active Substance: DEXAMETHASONE
     Dosage: 40 MG, QWK
     Dates: start: 20170215, end: 20170222
  14. CARFILZOMIB [Suspect]
     Active Substance: CARFILZOMIB
     Dosage: 22 MG/M2, UNK
     Route: 041
     Dates: start: 20170201, end: 20170202
  15. DEXAMETHASONE. [Concomitant]
     Active Substance: DEXAMETHASONE
     Dosage: 40 MG, UNK
     Dates: start: 20161121, end: 20161121
  16. ZOVIRAX [Concomitant]
     Active Substance: ACYCLOVIR
  17. CARFILZOMIB [Suspect]
     Active Substance: CARFILZOMIB
     Dosage: 22 MG/M2, UNK
     Route: 041
     Dates: start: 20161205, end: 20161206
  18. CARFILZOMIB [Suspect]
     Active Substance: CARFILZOMIB
     Dosage: 22 MG/M2, UNK
     Route: 041
     Dates: start: 20161212, end: 20161213
  19. CARFILZOMIB [Suspect]
     Active Substance: CARFILZOMIB
     Dosage: 22 MG/M2, UNK
     Route: 041
     Dates: start: 20161219, end: 20161220
  20. CARFILZOMIB [Suspect]
     Active Substance: CARFILZOMIB
     Dosage: 22 MG/M2, UNK
     Route: 041
     Dates: start: 20170222, end: 20170223
  21. CARFILZOMIB [Suspect]
     Active Substance: CARFILZOMIB
     Dosage: 22 MG/M2, UNK
     Route: 041
     Dates: start: 20170322, end: 20170323
  22. LENALIDOMIDE [Suspect]
     Active Substance: LENALIDOMIDE
     Dosage: 15 MG, UNK
     Route: 048
     Dates: start: 20170118, end: 20170207
  23. DEXAMETHASONE. [Concomitant]
     Active Substance: DEXAMETHASONE
     Dosage: 40 MG, QWK
     Dates: start: 20170301, end: 20170301
  24. CARFILZOMIB [Suspect]
     Active Substance: CARFILZOMIB
     Dosage: 22 MG/M2, UNK
     Route: 041
     Dates: start: 20170118, end: 20170119
  25. CARFILZOMIB [Suspect]
     Active Substance: CARFILZOMIB
     Dosage: 27 MG/M2, UNK
     Route: 041
     Dates: start: 20170405, end: 20170406
  26. DEXAMETHASONE. [Concomitant]
     Active Substance: DEXAMETHASONE
     Dosage: 40 MG, QWK
     Dates: start: 20161108, end: 20161115
  27. DEXAMETHASONE. [Concomitant]
     Active Substance: DEXAMETHASONE
     Dosage: 40 MG, UNK
     Dates: start: 20170322, end: 20170322
  28. DEXAMETHASONE. [Concomitant]
     Active Substance: DEXAMETHASONE
     Dosage: 40 MG, QWK
     Dates: start: 20170405, end: 20170419
  29. CARFILZOMIB [Suspect]
     Active Substance: CARFILZOMIB
     Dosage: 22 MG/M2, UNK
     Route: 041
     Dates: start: 20170215, end: 20170216
  30. CARFILZOMIB [Suspect]
     Active Substance: CARFILZOMIB
     Dosage: 22 MG/M2, UNK
     Route: 041
     Dates: start: 20170301, end: 20170302
  31. LENALIDOMIDE [Suspect]
     Active Substance: LENALIDOMIDE
     Dosage: 15 MG, UNK
     Route: 048
     Dates: start: 20161205, end: 20161225
  32. LENALIDOMIDE [Suspect]
     Active Substance: LENALIDOMIDE
     Dosage: 15 MG, UNK
     Route: 048
     Dates: start: 20170313, end: 20170402
  33. DEXAMETHASONE. [Concomitant]
     Active Substance: DEXAMETHASONE
     Dosage: 40 MG, QWK
     Dates: start: 20161205, end: 20161219
  34. DEXAMETHASONE. [Concomitant]
     Active Substance: DEXAMETHASONE
     Dosage: 40 MG, UNK
     Dates: start: 20170313, end: 20170313
  35. CARFILZOMIB [Suspect]
     Active Substance: CARFILZOMIB
     Dosage: 22 MG/M2, UNK
     Route: 041
     Dates: start: 20170313, end: 20170314
  36. DEXAMETHASONE. [Concomitant]
     Active Substance: DEXAMETHASONE
     Dosage: 20 MG, UNK
     Dates: start: 20161128, end: 20161128
  37. DEXAMETHASONE. [Concomitant]
     Active Substance: DEXAMETHASONE
     Dosage: 40 MG, QWK
     Dates: start: 20170118, end: 20170201
  38. DEXAMETHASONE. [Concomitant]
     Active Substance: DEXAMETHASONE
     Dosage: 20 MG, UNK
     Dates: start: 20170426, end: 20170426

REACTIONS (4)
  - Venous thrombosis limb [Unknown]
  - Vascular pain [Recovered/Resolved]
  - Cellulitis [Recovered/Resolved]
  - Pulmonary thrombosis [Unknown]

NARRATIVE: CASE EVENT DATE: 20161226
